FAERS Safety Report 6592360-0 (Version None)
Quarter: 2010Q1

REPORT INFORMATION
  Report Type: 
  Country: None (occurrence: None)
  Receive Date: 20100221
  Receipt Date: 20091002
  Transmission Date: 20100710
  Serious: No
  Sender: FDA-Public Use
  Company Number: US-ALLERGAN-0913753US

PATIENT

DRUGS (1)
  1. BOTOX [Suspect]
     Indication: BLEPHAROSPASM
     Dosage: 15 UNITS, SINGLE
     Route: 030
     Dates: start: 20090930, end: 20090930

REACTIONS (1)
  - LACRIMATION INCREASED [None]
